FAERS Safety Report 7914492-4 (Version None)
Quarter: 2011Q4

REPORT INFORMATION
  Report Type: 
  Country: None (occurrence: None)
  Receive Date: 20111115
  Receipt Date: 20111107
  Transmission Date: 20120403
  Serious: Yes (Death)
  Sender: FDA-Public Use
  Company Number: US-SANOFI-AVENTIS-2011SA066510

PATIENT
  Age: 82 Year
  Sex: Male
  Weight: 107 kg

DRUGS (18)
  1. WELLBUTRIN [Concomitant]
  2. GLIPIZIDE [Suspect]
     Indication: TYPE 2 DIABETES MELLITUS
     Dosage: DOSE: 10 MG IN THE MORNING AND 5 MG AT EVENING
     Route: 048
  3. ANTIHYPERTENSIVES [Suspect]
     Indication: BLOOD PRESSURE
     Route: 065
  4. COUMADIN [Concomitant]
  5. ZOFRAN [Concomitant]
  6. ATACAND [Concomitant]
  7. LOMOTIL [Concomitant]
  8. DIURETICS [Suspect]
     Route: 065
  9. TOPROL-XL [Concomitant]
  10. PIROXICAM [Concomitant]
  11. POLYCARBOPHIL CALCIUM [Concomitant]
  12. SOLOSTAR [Suspect]
     Indication: TYPE 2 DIABETES MELLITUS
     Dates: start: 20111007
  13. LIPITOR [Concomitant]
  14. ZANTAC [Concomitant]
  15. WELCHOL [Concomitant]
  16. TIMOLOL MALEATE [Concomitant]
  17. LANTUS [Suspect]
     Indication: TYPE 2 DIABETES MELLITUS
     Dosage: DOSE:5 UNIT(S)
     Route: 058
     Dates: start: 20111007
  18. XALATAN [Concomitant]

REACTIONS (2)
  - COMPLETED SUICIDE [None]
  - BLOOD GLUCOSE INCREASED [None]
